FAERS Safety Report 5251545-6 (Version None)
Quarter: 2007Q1

REPORT INFORMATION
  Report Type: 
  Country: None (occurrence: None)
  Receive Date: 20070228
  Receipt Date: 20060630
  Transmission Date: 20070707
  Serious: Yes (Other)
  Sender: FDA-Public Use
  Company Number: US-GLAXOSMITHKLINE-A0606941A

PATIENT

DRUGS (2)
  1. LAMICTAL [Suspect]
     Indication: EPILEPSY
     Route: 065
  2. DILANTIN [Suspect]
     Indication: EPILEPSY
     Route: 065

REACTIONS (3)
  - CONVULSION [None]
  - DRUG INEFFECTIVE [None]
  - NO ADVERSE EFFECT [None]
